FAERS Safety Report 6942288-9 (Version None)
Quarter: 2010Q3

REPORT INFORMATION
  Report Type: 
  Country: None (occurrence: None)
  Receive Date: 20100820
  Receipt Date: 20100803
  Transmission Date: 20110219
  Serious: Yes (Other)
  Sender: FDA-Public Use
  Company Number: 2010P1000656

PATIENT
  Age: 50 Year
  Sex: Female
  Weight: 54.3863 kg

DRUGS (8)
  1. LAMOTRIGINE [Suspect]
     Indication: BIPOLAR DISORDER
     Dosage: 300 MG;QD;PO
     Route: 048
     Dates: start: 20100501
  2. LAMOTRIGINE [Suspect]
     Indication: BIPOLAR DISORDER
     Dosage: 400 MG;QD;PO
     Route: 048
     Dates: start: 20080101, end: 20100501
  3. LAMICTAL [Suspect]
     Indication: BIPOLAR DISORDER
     Dosage: 300 MG;QD;PO
     Route: 048
     Dates: start: 19930101, end: 20080101
  4. ZOLOFT [Concomitant]
  5. SIMVASTATIN [Concomitant]
  6. XANAX [Concomitant]
  7. RITALIN (METHYLPHENIDATE HCL) [Concomitant]
  8. UNSPECIFIED EYE MEDICATION [Concomitant]

REACTIONS (14)
  - ARTHRITIS [None]
  - BACK PAIN [None]
  - BONE DISORDER [None]
  - CATARACT [None]
  - CLUMSINESS [None]
  - DISTURBANCE IN ATTENTION [None]
  - DRUG DOSE OMISSION [None]
  - IMPAIRED DRIVING ABILITY [None]
  - KYPHOSIS [None]
  - MEMORY IMPAIRMENT [None]
  - OSTEOPENIA [None]
  - OSTEOPOROSIS [None]
  - PSYCHOMOTOR HYPERACTIVITY [None]
  - WEIGHT DECREASED [None]
